FAERS Safety Report 4668350-1 (Version None)
Quarter: 2005Q2

REPORT INFORMATION
  Report Type: 
  Country: None (occurrence: None)
  Receive Date: 20050523
  Receipt Date: 20050211
  Transmission Date: 20051028
  Serious: Yes (Other)
  Sender: FDA-Public Use
  Company Number: PHEH2005US01932

PATIENT
  Sex: Female

DRUGS (3)
  1. ZOMETA [Suspect]
     Dosage: 4 MG, QMO
  2. AREDIA [Suspect]
     Dosage: 90 MG, QMO
  3. AREDIA [Suspect]
     Dosage: 60 MG, QMO

REACTIONS (1)
  - OSTEONECROSIS [None]
